FAERS Safety Report 18794616 (Version 1)
Quarter: 2021Q1

REPORT INFORMATION
  Report Type: Spontaneous
  Country: IT (occurrence: IT)
  Receive Date: 20210127
  Receipt Date: 20210127
  Transmission Date: 20210419
  Serious: Yes (Other)
  Sender: FDA-Public Use
  Company Number: IT-VERTEX PHARMACEUTICALS-2020-011367

PATIENT
  Age: 26 Year
  Sex: Female
  Weight: 54 kg

DRUGS (1)
  1. ORKAMBI [Suspect]
     Active Substance: IVACAFTOR\LUMACAFTOR
     Indication: CYSTIC FIBROSIS
     Dosage: 2 DOSAGE FORM, QD
     Route: 048
     Dates: start: 20180510

REACTIONS (1)
  - Lenticular opacities [Not Recovered/Not Resolved]

NARRATIVE: CASE EVENT DATE: 20200506
